FAERS Safety Report 15939850 (Version 3)
Quarter: 2019Q1

REPORT INFORMATION
  Report Type: Report from Study
  Country: US (occurrence: US)
  Receive Date: 20190208
  Receipt Date: 20190220
  Transmission Date: 20190417
  Serious: Yes (Hospitalization, Other)
  Sender: FDA-Public Use
  Company Number: US-GILEAD-2019-0387097

PATIENT
  Age: 65 Year
  Sex: Female
  Weight: 67.12 kg

DRUGS (17)
  1. NORVASC [Concomitant]
     Active Substance: AMLODIPINE BESYLATE
     Dosage: 10 MG, QD
     Route: 048
  2. TADALAFIL. [Concomitant]
     Active Substance: TADALAFIL
  3. AMLODIPINE [Concomitant]
     Active Substance: AMLODIPINE BESYLATE
  4. FISH OIL [Concomitant]
     Active Substance: FISH OIL
  5. OXYGEN. [Concomitant]
     Active Substance: OXYGEN
  6. HYZAAR [Concomitant]
     Active Substance: HYDROCHLOROTHIAZIDE\LOSARTAN POTASSIUM
  7. ASPIRIN 81 [Concomitant]
     Active Substance: ASPIRIN
  8. CHOLECALCIFEROL [Concomitant]
     Active Substance: CHOLECALCIFEROL
  9. ADCIRCA [Concomitant]
     Active Substance: TADALAFIL
     Indication: PULMONARY ARTERIAL HYPERTENSION
     Dosage: 40 MG, QD
     Dates: start: 2013
  10. FERROUS SULFATE. [Concomitant]
     Active Substance: FERROUS SULFATE
  11. REMODULIN [Concomitant]
     Active Substance: TREPROSTINIL
  12. AMBRISENTAN [Suspect]
     Active Substance: AMBRISENTAN
     Indication: PULMONARY ARTERIAL HYPERTENSION
     Dosage: 10 MG, QD
     Route: 065
     Dates: start: 2013
  13. AMBRISENTAN [Suspect]
     Active Substance: AMBRISENTAN
     Dosage: 5 MG, QD
     Route: 065
  14. LASIX [Concomitant]
     Active Substance: FUROSEMIDE
  15. PREDNISONE. [Concomitant]
     Active Substance: PREDNISONE
  16. TREPROSTINIL SODIUM [Suspect]
     Active Substance: TREPROSTINIL SODIUM
     Indication: PULMONARY ARTERIAL HYPERTENSION
     Dosage: 18-54 UG, QID
     Dates: start: 20181024
  17. TYVASO [Concomitant]
     Active Substance: TREPROSTINIL

REACTIONS (21)
  - Gastrointestinal haemorrhage [Recovered/Resolved]
  - Respiratory failure [Unknown]
  - Pleural effusion [Unknown]
  - Presyncope [Unknown]
  - Dyspnoea exertional [Unknown]
  - Orthopnoea [Unknown]
  - Headache [Unknown]
  - Dyspnoea [Not Recovered/Not Resolved]
  - Syncope [Unknown]
  - Acute kidney injury [Unknown]
  - Joint swelling [Recovering/Resolving]
  - Dyspnoea [Unknown]
  - Hypoxia [Unknown]
  - Malaise [Unknown]
  - Intentional product use issue [Not Recovered/Not Resolved]
  - Cough [Unknown]
  - Peripheral swelling [Recovering/Resolving]
  - Oedema peripheral [Unknown]
  - Somnolence [Unknown]
  - Dizziness [Unknown]
  - Fatigue [Unknown]

NARRATIVE: CASE EVENT DATE: 20190116
